FAERS Safety Report 13913511 (Version 1)
Quarter: 2017Q3

REPORT INFORMATION
  Report Type: Spontaneous
  Country: US (occurrence: US)
  Receive Date: 20170828
  Receipt Date: 20170828
  Transmission Date: 20171127
  Serious: No
  Sender: FDA-Public Use
  Company Number: US-ROCHE-1136283

PATIENT
  Sex: Female
  Weight: 61.29 kg

DRUGS (3)
  1. NUTROPIN [Suspect]
     Active Substance: SOMATROPIN
     Indication: GROWTH HORMONE DEFICIENCY
  2. NUTROPIN [Suspect]
     Active Substance: SOMATROPIN
     Indication: SECONDARY HYPOGONADISM
  3. NUTROPIN [Suspect]
     Active Substance: SOMATROPIN
     Indication: PRADER-WILLI SYNDROME
     Route: 058
     Dates: start: 19990106

REACTIONS (9)
  - Abdominal discomfort [Unknown]
  - Upper respiratory tract infection [Unknown]
  - Nasal congestion [Unknown]
  - Headache [Unknown]
  - Nausea [Unknown]
  - Pharyngeal erythema [Unknown]
  - Pyrexia [Unknown]
  - Strabismus [Unknown]
  - Costovertebral angle tenderness [Unknown]
